FAERS Safety Report 10293437 (Version 1)
Quarter: 2014Q3

REPORT INFORMATION
  Report Type: Spontaneous
  Country: US (occurrence: US)
  Receive Date: 20140710
  Receipt Date: 20140710
  Transmission Date: 20150326
  Serious: No
  Sender: FDA-Public Use
  Company Number: US-PURDUE-USA-2013-0109686

PATIENT
  Age: 32 Year
  Sex: Male

DRUGS (1)
  1. BUTRANS [Suspect]
     Active Substance: BUPRENORPHINE
     Indication: BACK PAIN
     Dosage: 20 MCG/HR, WEEKLY
     Route: 062
     Dates: start: 201306, end: 201312

REACTIONS (6)
  - Application site erythema [Unknown]
  - Application site burn [Not Recovered/Not Resolved]
  - Application site exfoliation [Unknown]
  - Application site odour [Recovered/Resolved]
  - Application site pruritus [Recovered/Resolved]
  - Application site infection [Unknown]

NARRATIVE: CASE EVENT DATE: 201311
